FAERS Safety Report 6660696-0 (Version None)
Quarter: 2010Q1

REPORT INFORMATION
  Report Type: 
  Country: None (occurrence: None)
  Receive Date: 20100326
  Receipt Date: 20100316
  Transmission Date: 20100710
  Serious: Yes (Other)
  Sender: FDA-Public Use
  Company Number: B0642670A

PATIENT
  Age: 5 Year
  Sex: Male

DRUGS (4)
  1. MELPHALAN HYDROCHLORIDE [Suspect]
     Indication: NEUROBLASTOMA
  2. CARBOPLATIN [Suspect]
     Indication: NEUROBLASTOMA
  3. ETOPOSIDE [Concomitant]
  4. STEM CELL TRANSPLANT [Concomitant]

REACTIONS (5)
  - ASCITES [None]
  - BLOOD BILIRUBIN INCREASED [None]
  - DRUG CLEARANCE DECREASED [None]
  - PLEURAL EFFUSION [None]
  - VENOOCCLUSIVE DISEASE [None]
